FAERS Safety Report 15189452 (Version 1)
Quarter: 2018Q3

REPORT INFORMATION
  Report Type: Spontaneous
  Country: US (occurrence: US)
  Receive Date: 20180724
  Receipt Date: 20180724
  Transmission Date: 20181010
  Serious: Yes (Hospitalization, Other)
  Sender: FDA-Public Use
  Company Number: US-WEST-WARD PHARMACEUTICALS CORP.-US-H14001-18-02661?

PATIENT
  Age: 90 Year
  Sex: Female
  Weight: 49.43 kg

DRUGS (18)
  1. FOSTAMATINIB DISODIUM [Suspect]
     Active Substance: FOSTAMATINIB DISODIUM
     Dates: start: 20141222, end: 20150611
  2. ASCORBIC ACID. [Concomitant]
     Active Substance: ASCORBIC ACID
     Indication: PRODUCT USED FOR UNKNOWN INDICATION
     Route: 065
     Dates: start: 20060622
  3. FLUTICASONE PROPIONATE. [Concomitant]
     Active Substance: FLUTICASONE PROPIONATE
     Indication: PRODUCT USED FOR UNKNOWN INDICATION
     Route: 065
  4. DANAZOL. [Concomitant]
     Active Substance: DANAZOL
     Indication: IMMUNE THROMBOCYTOPENIC PURPURA
     Route: 065
     Dates: start: 20080721
  5. FUROSEMIDE. [Concomitant]
     Active Substance: FUROSEMIDE
     Indication: PRODUCT USED FOR UNKNOWN INDICATION
     Route: 065
  6. HYDROCHLOROTHIAZIDE. [Concomitant]
     Active Substance: HYDROCHLOROTHIAZIDE
     Indication: PRODUCT USED FOR UNKNOWN INDICATION
     Route: 065
  7. FOSTAMATINIB DISODIUM [Suspect]
     Active Substance: FOSTAMATINIB DISODIUM
     Route: 065
     Dates: start: 20171122
  8. FERROUS SULFATE. [Concomitant]
     Active Substance: FERROUS SULFATE
     Indication: PRODUCT USED FOR UNKNOWN INDICATION
     Route: 065
     Dates: start: 20081006
  9. VITAMIN D2 AND CALCIUM HYDROGEN PHOSPHATE [Concomitant]
     Indication: PRODUCT USED FOR UNKNOWN INDICATION
     Route: 065
  10. LIDOCAINE. [Concomitant]
     Active Substance: LIDOCAINE
     Indication: PRODUCT USED FOR UNKNOWN INDICATION
     Route: 065
  11. METOPROLOL. [Concomitant]
     Active Substance: METOPROLOL
     Indication: PRODUCT USED FOR UNKNOWN INDICATION
     Route: 065
  12. PANTOPRAZOLE [Concomitant]
     Active Substance: PANTOPRAZOLE
     Indication: PRODUCT USED FOR UNKNOWN INDICATION
     Route: 065
     Dates: start: 20150519
  13. CALCIUM CITRATE [Concomitant]
     Active Substance: CALCIUM CITRATE
     Indication: PRODUCT USED FOR UNKNOWN INDICATION
     Route: 065
     Dates: start: 20040525
  14. FOLIC ACID. [Concomitant]
     Active Substance: FOLIC ACID
     Indication: PRODUCT USED FOR UNKNOWN INDICATION
     Route: 065
  15. FOSTAMATINIB DISODIUM [Suspect]
     Active Substance: FOSTAMATINIB DISODIUM
     Indication: IMMUNE THROMBOCYTOPENIC PURPURA
     Route: 048
     Dates: start: 20150611, end: 201703
  16. FOSTAMATINIB DISODIUM [Suspect]
     Active Substance: FOSTAMATINIB DISODIUM
     Route: 065
     Dates: start: 20170406, end: 20171115
  17. PREDNISONE. [Suspect]
     Active Substance: PREDNISONE
     Indication: IMMUNE THROMBOCYTOPENIC PURPURA
     Route: 048
  18. CYANOCOBALAMIN. [Concomitant]
     Active Substance: CYANOCOBALAMIN
     Indication: PRODUCT USED FOR UNKNOWN INDICATION
     Route: 065

REACTIONS (42)
  - Aortic stenosis [None]
  - PCO2 decreased [None]
  - Gastrointestinal haemorrhage [None]
  - Blood pressure abnormal [None]
  - PO2 decreased [None]
  - Red blood cell count decreased [None]
  - Weight increased [Recovered/Resolved]
  - Urosepsis [None]
  - Blood sodium decreased [None]
  - Lymphocyte percentage decreased [None]
  - Alanine aminotransferase increased [None]
  - Blood potassium decreased [None]
  - Arteriosclerosis [None]
  - Acute kidney injury [Recovered/Resolved]
  - Pulmonary congestion [Unknown]
  - Tachycardia [None]
  - Atelectasis [None]
  - Myocardial infarction [None]
  - Calcium ionised decreased [None]
  - Neutrophil percentage increased [None]
  - Blood albumin decreased [None]
  - Blood glucose increased [None]
  - Carbon dioxide increased [None]
  - Atrial fibrillation [Recovered/Resolved]
  - Cardiomegaly [None]
  - Supraventricular extrasystoles [None]
  - Left ventricular hypertrophy [None]
  - Blood pH increased [None]
  - Haematocrit decreased [None]
  - Platelet count decreased [None]
  - Protein total decreased [None]
  - Blood alkaline phosphatase increased [None]
  - Klebsiella infection [Recovering/Resolving]
  - Urinary tract infection [Recovering/Resolving]
  - Bacteraemia [None]
  - Blood chloride decreased [None]
  - Sepsis [Recovered/Resolved with Sequelae]
  - Listeriosis [Recovering/Resolving]
  - Pleural effusion [None]
  - Haemoglobin decreased [None]
  - White blood cell count decreased [None]
  - Aspartate aminotransferase increased [None]

NARRATIVE: CASE EVENT DATE: 20161111
